FAERS Safety Report 11135746 (Version 1)
Quarter: 2015Q2

REPORT INFORMATION
  Report Type: Spontaneous
  Country: US (occurrence: US)
  Receive Date: 20150526
  Receipt Date: 20150526
  Transmission Date: 20150821
  Serious: No
  Sender: FDA-Public Use
  Company Number: US-MALLINCKRODT-T201501975

PATIENT
  Sex: Female
  Weight: 60 kg

DRUGS (7)
  1. ORNITHINE [Concomitant]
     Active Substance: ORNITHINE
     Dosage: UNK
  2. L-ARGININE HCL [Concomitant]
     Dosage: UNK
  3. LYSINE [Concomitant]
     Active Substance: LYSINE
     Dosage: UNK
  4. H.P. ACTHAR [Suspect]
     Active Substance: CORTICOTROPIN
     Indication: MULTIPLE SCLEROSIS
     Dosage: 40 UNITS (OR 0.5 ML) FOR 4 DAYS
     Route: 058
     Dates: start: 20140927, end: 20141001
  5. CURCUMIN [Concomitant]
     Active Substance: CURCUMIN
     Indication: SUPPLEMENTATION THERAPY
     Dosage: UNK
  6. L-GLUTAMINE [Concomitant]
     Dosage: UNK
  7. FUCOIDAN [Concomitant]
     Dosage: UNK

REACTIONS (2)
  - Pain [Not Recovered/Not Resolved]
  - Peripheral swelling [Not Recovered/Not Resolved]
